FAERS Safety Report 25427375 (Version 1)
Quarter: 2025Q2

REPORT INFORMATION
  Report Type: Spontaneous
  Country: US (occurrence: US)
  Receive Date: 20250612
  Receipt Date: 20250612
  Transmission Date: 20250717
  Serious: Yes (Other)
  Sender: GLAXOSMITHKLINE
  Company Number: US-GLAXOSMITHKLINE INC-US2025AMR071164

PATIENT
  Age: 69 Year
  Sex: Male

DRUGS (4)
  1. NUCALA [Suspect]
     Active Substance: MEPOLIZUMAB
     Indication: Hypereosinophilic syndrome
     Dosage: 300 MG, Q4W
  2. NUCALA [Suspect]
     Active Substance: MEPOLIZUMAB
     Indication: Renal disorder
  3. NUCALA [Suspect]
     Active Substance: MEPOLIZUMAB
     Indication: Ureteral disorder
  4. NUCALA [Suspect]
     Active Substance: MEPOLIZUMAB
     Indication: Cystitis

REACTIONS (2)
  - Inflammatory bowel disease [Unknown]
  - Product use in unapproved indication [Unknown]

NARRATIVE: CASE EVENT DATE: 20250301
